FAERS Safety Report 9270920 (Version 2)
Quarter: 2013Q2

REPORT INFORMATION
  Report Type: Spontaneous
  Country: US (occurrence: US)
  Receive Date: 20130506
  Receipt Date: 20130509
  Transmission Date: 20140414
  Serious: Yes (Other)
  Sender: FDA-Public Use
  Company Number: US-ROCHE-1220780

PATIENT
  Age: 13 Year
  Sex: Female

DRUGS (2)
  1. TAMIFLU [Suspect]
     Indication: INFLUENZA
     Route: 065
  2. MOTRIN [Concomitant]
     Indication: PYREXIA

REACTIONS (6)
  - Head injury [Recovered/Resolved]
  - Concussion [Recovered/Resolved]
  - Convulsion [Recovered/Resolved with Sequelae]
  - Depression [Recovering/Resolving]
  - Pyrexia [Recovered/Resolved]
  - Fall [Recovered/Resolved with Sequelae]
